FAERS Safety Report 24683964 (Version 1)
Quarter: 2024Q4

REPORT INFORMATION
  Report Type: Report from Study
  Country: MX (occurrence: MX)
  Receive Date: 20241202
  Receipt Date: 20241202
  Transmission Date: 20250115
  Serious: Yes (Other)
  Sender: BIOVITRUM
  Company Number: MX-AstraZeneca-CH-00753952A

PATIENT
  Age: 4 Month
  Sex: Female
  Weight: 4.88 kg

DRUGS (3)
  1. PALIVIZUMAB [Suspect]
     Active Substance: PALIVIZUMAB
     Indication: Respiratory syncytial virus infection
     Dosage: 1ST DOSE, MONTHLY
     Dates: start: 20240924
  2. PALIVIZUMAB [Suspect]
     Active Substance: PALIVIZUMAB
     Dosage: 2ND DOSE, MONTHLY
     Dates: start: 20241018, end: 20241018
  3. PALIVIZUMAB [Suspect]
     Active Substance: PALIVIZUMAB
     Dosage: 3RD DOSE, MONTHLY
     Dates: start: 20241120

REACTIONS (3)
  - Eye infection viral [Recovered/Resolved]
  - Eye discharge [Recovered/Resolved]
  - Lacrimation increased [Recovered/Resolved]

NARRATIVE: CASE EVENT DATE: 20241018
